FAERS Safety Report 7786484-X (Version None)
Quarter: 2011Q3

REPORT INFORMATION
  Report Type: 
  Country: None (occurrence: None)
  Receive Date: 20110929
  Receipt Date: 20110922
  Transmission Date: 20111222
  Serious: No
  Sender: FDA-Public Use
  Company Number: GB-PFIZER INC-2011159468

PATIENT
  Age: 82 Year
  Sex: Male
  Weight: 79 kg

DRUGS (13)
  1. CO-DYDRAMOL [Concomitant]
     Dosage: 10 MG, EVERY 6 HOURS IF NEEDED
  2. PREDNISOLONE [Concomitant]
     Dosage: 5 MG, UNK
  3. ZOPICLONE [Concomitant]
     Dosage: 3.75 MG, 1 AT NIGHT
  4. TERBUTALINE [Concomitant]
     Dosage: 100 UG, AS NEEDED
     Route: 055
  5. ACETYLSALICYLIC ACID [Concomitant]
     Dosage: 75 MG, 1X/DAY
  6. ATORVASTATIN CALCIUM [Suspect]
     Indication: MYOCARDIAL ISCHAEMIA
     Dosage: 10 MG, 1X/DAY
     Route: 048
     Dates: start: 20090601, end: 20110808
  7. NICORANDIL [Concomitant]
     Dosage: 10 MG, 2X/DAY
  8. GLYCERYL TRINITRATE [Concomitant]
     Dosage: 400 UG, 1 PUFF AS NEEDED
     Route: 055
  9. LOSARTAN [Concomitant]
     Dosage: 50 MG, 1X/DAY
  10. DILZEM [Concomitant]
     Dosage: 60 MG, 2X/DAY
  11. CO-DYDRAMOL [Concomitant]
     Dosage: 500 MG, EVERY 6 HOURS IF NEEDED
  12. SERETIDE [Concomitant]
     Dosage: 60 UNK, 2X/DAY
     Route: 055
  13. OMEPRAZOLE [Concomitant]
     Dosage: 20 MG, 1X/DAY

REACTIONS (2)
  - PAIN [None]
  - ARTHRALGIA [None]
